FAERS Safety Report 14093042 (Version 2)
Quarter: 2017Q4

REPORT INFORMATION
  Report Type: Spontaneous
  Country: US (occurrence: US)
  Receive Date: 20171016
  Receipt Date: 20171207
  Transmission Date: 20180321
  Serious: Yes (Other)
  Sender: FDA-Public Use
  Company Number: US-ALLERGAN-1757665US

PATIENT
  Age: 69 Year
  Sex: Female

DRUGS (3)
  1. VSL 3 [Concomitant]
     Active Substance: PROBIOTICS NOS
     Indication: CROHN^S DISEASE
     Dosage: UNK
     Route: 048
  2. ASACOL [Suspect]
     Active Substance: MESALAMINE
     Indication: CROHN^S DISEASE
     Dosage: 3 DF, BID
     Route: 048
     Dates: start: 2015, end: 201710
  3. ASACOL [Suspect]
     Active Substance: MESALAMINE
     Dosage: 2 DF, BID
     Route: 048
     Dates: start: 2017

REACTIONS (8)
  - Off label use [Unknown]
  - Inappropriate schedule of drug administration [Unknown]
  - Hypertension [Recovered/Resolved]
  - Gastrointestinal disorder [Recovering/Resolving]
  - Oedema mucosal [Recovered/Resolved]
  - Loss of consciousness [Recovered/Resolved]
  - Malaise [Recovered/Resolved]
  - Dyspnoea [Recovered/Resolved]

NARRATIVE: CASE EVENT DATE: 2017
